FAERS Safety Report 8459705-8 (Version None)
Quarter: 2012Q2

REPORT INFORMATION
  Report Type: 
  Country: None (occurrence: None)
  Receive Date: 20120615
  Receipt Date: 20120611
  Transmission Date: 20120825
  Serious: Yes (Other)
  Sender: FDA-Public Use
  Company Number: GER/GER/12/0024658

PATIENT
  Sex: Female

DRUGS (3)
  1. FOLIC ACID [Concomitant]
  2. LAMOTRIGINE [Suspect]
     Indication: PRODUCT USED FOR UNKNOWN INDICATION
     Dosage: 650 MG, 1 IN 1 D, TRANSPLACENTAL
     Route: 064
     Dates: start: 20110409, end: 20120113
  3. LEVOTHYROXINE SODIUM [Concomitant]

REACTIONS (7)
  - SOMNOLENCE NEONATAL [None]
  - ULTRASOUND SCAN ABNORMAL [None]
  - POOR WEIGHT GAIN NEONATAL [None]
  - ANKYLOGLOSSIA CONGENITAL [None]
  - SOMNOLENCE [None]
  - MATERNAL DRUGS AFFECTING FOETUS [None]
  - ARTHROPATHY [None]
